FAERS Safety Report 5547009-2 (Version None)
Quarter: 2007Q4

REPORT INFORMATION
  Report Type: 
  Country: None (occurrence: None)
  Receive Date: 20071211
  Receipt Date: 20071129
  Transmission Date: 20080405
  Serious: Yes (Death, Hospitalization)
  Sender: FDA-Public Use
  Company Number: FR-PFIZER INC-2007100705

PATIENT
  Age: 69 Year
  Sex: Male

DRUGS (4)
  1. SOLU-MEDROL [Suspect]
     Route: 042
     Dates: start: 20070726, end: 20070726
  2. GEMZAR [Suspect]
     Indication: PANCREATIC CARCINOMA
     Route: 042
     Dates: start: 20070726, end: 20070726
  3. ELOXATIN [Suspect]
     Indication: PANCREATIC CARCINOMA
     Route: 042
     Dates: start: 20070726, end: 20070726
  4. ONDANSETRON [Suspect]
     Indication: PANCREATIC CARCINOMA
     Dates: start: 20070726, end: 20070726

REACTIONS (2)
  - MOUTH HAEMORRHAGE [None]
  - THROMBOCYTOPENIA [None]
